FAERS Safety Report 5721650-6 (Version None)
Quarter: 2008Q2

REPORT INFORMATION
  Report Type: 
  Country: None (occurrence: None)
  Receive Date: 20080428
  Receipt Date: 20080428
  Transmission Date: 20081010
  Serious: No
  Sender: FDA-Public Use
  Company Number: None

PATIENT
  Sex: Female
  Weight: 48.5349 kg

DRUGS (4)
  1. ZOLOFT [Suspect]
     Indication: ANXIETY
     Dosage: 20 MG  1 DAILY  P.O.
     Route: 048
     Dates: start: 20060101
  2. ZOLOFT [Suspect]
     Indication: DEPRESSION
     Dosage: 20 MG  1 DAILY  P.O.
     Route: 048
     Dates: start: 20060101
  3. PAROXETINE HCL [Suspect]
     Indication: ANXIETY
     Dosage: 20 MG  2 IN AM  2 IN AM  P.O.
     Route: 048
     Dates: start: 20070101
  4. PAROXETINE HCL [Suspect]
     Indication: DEPRESSION
     Dosage: 20 MG  2 IN AM  2 IN AM  P.O.
     Route: 048
     Dates: start: 20070101

REACTIONS (2)
  - DRUG INEFFECTIVE [None]
  - THERAPEUTIC RESPONSE UNEXPECTED WITH DRUG SUBSTITUTION [None]
